FAERS Safety Report 6088532-4 (Version None)
Quarter: 2009Q1

REPORT INFORMATION
  Report Type: 
  Country: None (occurrence: None)
  Receive Date: 20090224
  Receipt Date: 20090218
  Transmission Date: 20090719
  Serious: Yes (Death, Hospitalization)
  Sender: FDA-Public Use
  Company Number: US-CELGENEUS-163-21880-09011268

PATIENT
  Sex: Female

DRUGS (2)
  1. REVLIMID [Suspect]
     Indication: MULTIPLE MYELOMA
     Route: 048
     Dates: start: 20080818, end: 20090101
  2. REVLIMID [Suspect]
     Route: 048
     Dates: start: 20080701, end: 20080801

REACTIONS (4)
  - HEPATIC FAILURE [None]
  - LUNG NEOPLASM MALIGNANT [None]
  - PAIN [None]
  - RENAL FAILURE [None]
